FAERS Safety Report 8911857 (Version 3)
Quarter: 2013Q2

REPORT INFORMATION
  Report Type: Report from Study
  Country: CA (occurrence: CA)
  Receive Date: 20121116
  Receipt Date: 20130513
  Transmission Date: 20140414
  Serious: Yes (Other)
  Sender: FDA-Public Use
  Company Number: CA-JNJFOC-20121105517

PATIENT
  Age: 53 Year
  Sex: Male
  Weight: 81.8 kg

DRUGS (8)
  1. REMICADE [Suspect]
     Indication: CROHN^S DISEASE
     Dosage: RECEIVED 54TH INFUSIONS
     Route: 042
  2. REMICADE [Suspect]
     Indication: CROHN^S DISEASE
     Dosage: RECEIVED 52 INFUSIONS
     Route: 042
     Dates: start: 20060901
  3. CHOLESTYRAMINE [Concomitant]
     Route: 065
  4. ADALAT [Concomitant]
     Route: 065
  5. OLMETEC [Concomitant]
     Route: 065
  6. IMODIUM [Concomitant]
     Route: 065
  7. BENADRYL [Concomitant]
     Indication: PREMEDICATION
     Route: 065
  8. PREDNISONE [Concomitant]
     Route: 048

REACTIONS (3)
  - Suicidal ideation [Unknown]
  - Depression [Recovering/Resolving]
  - Rash pruritic [Not Recovered/Not Resolved]
